FAERS Safety Report 4478133-3 (Version None)
Quarter: 2004Q4

REPORT INFORMATION
  Report Type: 
  Country: None (occurrence: None)
  Receive Date: 20041018
  Receipt Date: 20041018
  Transmission Date: 20050328
  Serious: Yes (Other)
  Sender: FDA-Public Use
  Company Number: None

PATIENT
  Sex: Female
  Weight: 88.4514 kg

DRUGS (14)
  1. GENERIC POTASSIUM [Suspect]
     Indication: DRUG TOLERANCE DECREASED
     Dosage: ANY
  2. NEXIUM [Concomitant]
  3. MAXZIDE [Concomitant]
  4. LIDOCAINE [Concomitant]
  5. ZYRTEC [Concomitant]
  6. ATIVAN [Concomitant]
  7. ZETIA [Concomitant]
  8. POTASSIUM CHLORIDE CR [Concomitant]
  9. ESTRADERM [Concomitant]
  10. LEVOTHROID [Concomitant]
  11. BEXTRA [Concomitant]
  12. TESSALON [Concomitant]
  13. FLUCONAZOLE [Concomitant]
  14. FERROUS SULFATE TAB [Concomitant]

REACTIONS (2)
  - DRUG INTOLERANCE [None]
  - PHARMACEUTICAL PRODUCT COMPLAINT [None]
